FAERS Safety Report 7903366-0 (Version None)
Quarter: 2011Q4

REPORT INFORMATION
  Report Type: 
  Country: None (occurrence: None)
  Receive Date: 20111109
  Receipt Date: 20111103
  Transmission Date: 20120403
  Serious: Yes (Other)
  Sender: FDA-Public Use
  Company Number: US-SHIONOGI, INC-2011000200

PATIENT

DRUGS (9)
  1. LORTAB [Concomitant]
     Indication: ARTHRITIS
     Dosage: UNK
  2. EPINEPHRINE [Suspect]
     Indication: HYPERSENSITIVITY
     Dosage: 0.3 MG, UNK
  3. NAPROXEN [Concomitant]
     Indication: INFLAMMATION
     Dosage: UNK
  4. DIOVAN [Concomitant]
     Dosage: UNK, EVERY NIGHT
  5. CITALOPRAM HYDROBROMIDE [Concomitant]
     Indication: NERVOUS SYSTEM DISORDER
     Dosage: UNK
  6. EPINEPHRINE [Suspect]
     Indication: URTICARIA
  7. CARDIAC THERAPY [Concomitant]
     Dosage: UNK, EVERY MORNING
  8. SPIRIVA [Concomitant]
     Indication: CHRONIC OBSTRUCTIVE PULMONARY DISEASE
     Dosage: UNK UNK, PRN
  9. CRESTOR [Concomitant]
     Indication: BLOOD CHOLESTEROL
     Dosage: UNK

REACTIONS (2)
  - PRODUCT QUALITY ISSUE [None]
  - DEVICE FAILURE [None]
